FAERS Safety Report 11931170 (Version 2)
Quarter: 2016Q1

REPORT INFORMATION
  Report Type: Spontaneous
  Country: JP (occurrence: JP)
  Receive Date: 20160120
  Receipt Date: 20160208
  Transmission Date: 20160526
  Serious: Yes (Hospitalization)
  Sender: FDA-Public Use
  Company Number: JP-JNJFOC-20160112155

PATIENT
  Age: 68 Year
  Sex: Male

DRUGS (18)
  1. SIMPONI [Suspect]
     Active Substance: GOLIMUMAB
     Indication: RHEUMATOID VASCULITIS
     Route: 058
     Dates: start: 20150427
  2. PAXIL [Concomitant]
     Active Substance: PAROXETINE HYDROCHLORIDE
     Dosage: 30 MIN AFTER DINNER
     Route: 048
  3. RHEUMATREX [Concomitant]
     Active Substance: METHOTREXATE SODIUM
     Dosage: AFTER BREAKFAST 4MG, AFTER DINNER 2MG ON TUESDAY
     Route: 048
  4. SIMPONI [Suspect]
     Active Substance: GOLIMUMAB
     Indication: RHEUMATOID ARTHRITIS
     Route: 058
     Dates: start: 20150427
  5. VONFENAC [Concomitant]
     Active Substance: DICLOFENAC SODIUM
     Dosage: P.R.N, AT PAIN
     Route: 054
  6. URSO [Concomitant]
     Active Substance: URSODIOL
     Dosage: 30 MIN AFTER BREAKFAST, LUNCH AND DINNER
     Route: 048
  7. SIMPONI [Suspect]
     Active Substance: GOLIMUMAB
     Indication: RHEUMATOID VASCULITIS
     Route: 058
     Dates: start: 201205, end: 201311
  8. LOXOPROFEN [Concomitant]
     Active Substance: LOXOPROFEN
     Dosage: 30 MIN AFTER BREAKFAST, LUNCH AND DINNER
     Route: 048
  9. SOLANAX [Concomitant]
     Active Substance: ALPRAZOLAM
     Dosage: 30 MIN AFTER BREAKFAST AND DINNER
     Route: 048
  10. VALSARTAN. [Concomitant]
     Active Substance: VALSARTAN
     Dosage: 30 MIN AFTER BREAKFAST
     Route: 048
  11. POLAPREZINC [Concomitant]
     Active Substance: POLAPREZINC
     Dosage: 30 MIN AFTER BREAKFAST AND DINNER
     Route: 048
  12. ACTONEL [Concomitant]
     Active Substance: RISEDRONATE SODIUM
     Dosage: AT AWAKENING
     Route: 048
  13. PROGRAF [Concomitant]
     Active Substance: TACROLIMUS\TACROLIMUS ANHYDROUS
     Dosage: 30 MIN AFTER DINNER
     Route: 048
  14. FOLIAMIN [Concomitant]
     Active Substance: FOLIC ACID
     Dosage: AFTER BREAKFAST ON THURSDAY
     Route: 048
  15. SALAZOSULFAPYRIDINE [Concomitant]
     Active Substance: SULFASALAZINE
     Dosage: 30 MIN AFTER BREAKFAST AND DINNER
     Route: 048
  16. SIMPONI [Suspect]
     Active Substance: GOLIMUMAB
     Indication: RHEUMATOID ARTHRITIS
     Route: 058
     Dates: start: 201205, end: 201311
  17. PARIET [Concomitant]
     Active Substance: RABEPRAZOLE SODIUM
     Dosage: 30 MIN AFTER BREAKFAST
     Route: 048
  18. LOXONIN [Concomitant]
     Active Substance: LOXOPROFEN SODIUM
     Dosage: ONCE OR TWICE DAILY, PAIN AREA
     Route: 065

REACTIONS (3)
  - Sinusitis [Recovered/Resolved]
  - Off label use [Unknown]
  - Product use issue [Unknown]

NARRATIVE: CASE EVENT DATE: 20130503
